FAERS Safety Report 15088025 (Version 2)
Quarter: 2018Q3

REPORT INFORMATION
  Report Type: Spontaneous
  Country: US (occurrence: US)
  Receive Date: 20180629
  Receipt Date: 20180829
  Transmission Date: 20181010
  Serious: Yes (Hospitalization)
  Sender: FDA-Public Use
  Company Number: US-BEH-2018092212

PATIENT
  Sex: Female
  Weight: 142.86 kg

DRUGS (22)
  1. DOXYCYCLINE. [Concomitant]
     Active Substance: DOXYCYCLINE
  2. METFORMIN [Concomitant]
     Active Substance: METFORMIN HYDROCHLORIDE
  3. EPINEPHRINE. [Concomitant]
     Active Substance: EPINEPHRINE
  4. LEVAQUIN [Concomitant]
     Active Substance: LEVOFLOXACIN
  5. FENTANYL. [Concomitant]
     Active Substance: FENTANYL
  6. PAROXETINE. [Concomitant]
     Active Substance: PAROXETINE
  7. HEPARIN [Concomitant]
     Active Substance: HEPARIN SODIUM
  8. ROPINIROLE. [Concomitant]
     Active Substance: ROPINIROLE
  9. VICODIN [Concomitant]
     Active Substance: ACETAMINOPHEN\HYDROCODONE BITARTRATE
  10. GABAPENTIN. [Concomitant]
     Active Substance: GABAPENTIN
  11. BUPROPION. [Concomitant]
     Active Substance: BUPROPION
  12. MICONAZOLE. [Concomitant]
     Active Substance: MICONAZOLE
  13. VITAMINS WITH MINERALS [Concomitant]
     Active Substance: MINERALS\VITAMINS
  14. ZOFRAN [Concomitant]
     Active Substance: ONDANSETRON HYDROCHLORIDE
  15. HYDROXYZINE [Concomitant]
     Active Substance: HYDROXYZINE HYDROCHLORIDE
  16. HAEGARDA [Suspect]
     Active Substance: HUMAN C1-ESTERASE INHIBITOR
     Indication: HEREDITARY ANGIOEDEMA
     Dosage: 6000 IU, UNK
     Route: 058
     Dates: start: 20180620
  17. HAEGARDA [Suspect]
     Active Substance: HUMAN C1-ESTERASE INHIBITOR
     Indication: PROPHYLAXIS
     Dosage: UNK
     Route: 058
  18. SODIUM CHLORIDE. [Concomitant]
     Active Substance: SODIUM CHLORIDE
  19. TRAZODONE [Concomitant]
     Active Substance: TRAZODONE HYDROCHLORIDE
  20. WARFARIN [Concomitant]
     Active Substance: WARFARIN
  21. ECOTRIN [Concomitant]
     Active Substance: ASPIRIN
  22. STERILE WATER [Concomitant]
     Active Substance: WATER

REACTIONS (1)
  - Hereditary angioedema [Unknown]

NARRATIVE: CASE EVENT DATE: 2018
